FAERS Safety Report 6434925-2 (Version None)
Quarter: 2009Q4

REPORT INFORMATION
  Report Type: 
  Country: None (occurrence: None)
  Receive Date: 20091110
  Receipt Date: 20091103
  Transmission Date: 20100525
  Serious: Yes (Life-Threatening, Hospitalization)
  Sender: FDA-Public Use
  Company Number: FR-TEVA-214458ISR

PATIENT
  Sex: Female
  Weight: 64 kg

DRUGS (7)
  1. IRINOTECAN HCL [Suspect]
     Indication: COLORECTAL CANCER
     Route: 042
     Dates: start: 20060116, end: 20060116
  2. FLUOROURACIL [Suspect]
     Indication: COLORECTAL CANCER
     Route: 040
     Dates: start: 20060116, end: 20060116
  3. FLUOROURACIL [Suspect]
     Route: 041
     Dates: start: 20060116, end: 20060118
  4. FOLINIC ACID [Suspect]
     Indication: COLORECTAL CANCER
     Route: 042
     Dates: start: 20060116, end: 20060116
  5. METHYLPREDNISOLONE 4MG TAB [Concomitant]
     Route: 048
  6. ONDANSETRON HYDROCHLORIDE [Concomitant]
     Route: 048
  7. METOCLOPRAMIDE [Concomitant]
     Route: 048

REACTIONS (5)
  - ANXIETY [None]
  - ASTHENIA [None]
  - DIARRHOEA [None]
  - DYSPEPSIA [None]
  - VOMITING [None]
